FAERS Safety Report 5599955-1 (Version None)
Quarter: 2008Q1

REPORT INFORMATION
  Report Type: 
  Country: None (occurrence: None)
  Receive Date: 20080123
  Receipt Date: 20080111
  Transmission Date: 20080703
  Serious: Yes (Hospitalization)
  Sender: FDA-Public Use
  Company Number: US-NOVOPROD-262423

PATIENT
  Sex: Male
  Weight: 54.422 kg

DRUGS (2)
  1. NOVOSEVEN [Suspect]
     Indication: HAEMOPHILIA A WITH ANTI FACTOR VIII
     Dosage: 7.2 MG, X 3 DOSES OVER A 24-HOUR PERIOD PRN
     Route: 042
     Dates: start: 20060101
  2. NOVOSEVEN [Suspect]
     Indication: HAEMORRHAGE

REACTIONS (1)
  - AGITATION [None]
